FAERS Safety Report 10248883 (Version 1)
Quarter: 2014Q2

REPORT INFORMATION
  Report Type: Spontaneous
  Country: US (occurrence: US)
  Receive Date: 20140620
  Receipt Date: 20140620
  Transmission Date: 20141212
  Serious: Yes (Congenital Anomaly)
  Sender: FDA-Public Use
  Company Number: US-JNJFOC-20140612358

PATIENT
  Sex: Female

DRUGS (6)
  1. TOPAMAX [Suspect]
     Indication: COMPLEX PARTIAL SEIZURES
     Dosage: MOTHER^S DOSING
     Route: 048
  2. PHENOBARBITAL [Suspect]
     Indication: COMPLEX PARTIAL SEIZURES
     Dosage: MOTHER^S DOSING
     Route: 064
  3. MYSOLINE [Suspect]
     Indication: CONVULSION
     Dosage: MOTHER^S DOSING
     Route: 064
  4. LEXAPRO [Suspect]
     Indication: CONVULSION
     Dosage: MOTHER^S DOSING
     Route: 064
  5. MULTIVITAMINS [Concomitant]
     Indication: PRODUCT USED FOR UNKNOWN INDICATION
     Dosage: MOTHER^S DOSING
     Route: 064
  6. FOLIC ACID [Concomitant]
     Indication: PRODUCT USED FOR UNKNOWN INDICATION
     Dosage: MOTHER^S DOSING
     Route: 064

REACTIONS (5)
  - Foetal exposure during pregnancy [Recovered/Resolved]
  - Cleft lip [Recovering/Resolving]
  - Cleft lip and palate [Recovering/Resolving]
  - Atrial septal defect [Unknown]
  - Ventricular septal defect [Unknown]
